FAERS Safety Report 21109281 (Version 1)
Quarter: 2022Q3

REPORT INFORMATION
  Report Type: Spontaneous
  Country: JP (occurrence: JP)
  Receive Date: 20220721
  Receipt Date: 20220721
  Transmission Date: 20221026
  Serious: Yes (Hospitalization, Other)
  Sender: FDA-Public Use
  Company Number: JP-ALXN-A202204259AA

PATIENT
  Age: 38 Year
  Sex: Female

DRUGS (9)
  1. CALONAL [Suspect]
     Active Substance: ACETAMINOPHEN
     Indication: Pyrexia
     Dosage: UNK
     Route: 065
  2. CALONAL [Suspect]
     Active Substance: ACETAMINOPHEN
     Indication: Headache
  3. PREDONINE [Suspect]
     Active Substance: PREDNISOLONE
     Indication: Myasthenia gravis
     Dosage: 7 MG, UNK
     Route: 065
     Dates: start: 201702
  4. PROGRAF [Suspect]
     Active Substance: TACROLIMUS
     Indication: Myasthenia gravis
     Dosage: UNK
     Route: 065
     Dates: start: 201703
  5. SOLIRIS [Suspect]
     Active Substance: ECULIZUMAB
     Indication: Myasthenia gravis
     Dosage: 900 MG, QW
     Route: 042
     Dates: start: 20220323, end: 20220330
  6. SOLIRIS [Suspect]
     Active Substance: ECULIZUMAB
     Dosage: 900 MG, QW
     Route: 042
     Dates: start: 20220413
  7. Covid-19 Vaccine [Concomitant]
     Indication: COVID-19 immunisation
     Dosage: UNK, SINGLE
     Route: 030
     Dates: start: 20210709, end: 20210709
  8. Covid-19 Vaccine [Concomitant]
     Dosage: UNK, SINGLE
     Route: 030
     Dates: start: 20210728, end: 20210728
  9. Covid-19 Vaccine [Concomitant]
     Dosage: UNK, SINGLE
     Route: 030
     Dates: start: 2022

REACTIONS (4)
  - Suspected COVID-19 [Not Recovered/Not Resolved]
  - Pyrexia [Recovered/Resolved]
  - Eyelid ptosis [Recovering/Resolving]
  - Vomiting [Recovered/Resolved]

NARRATIVE: CASE EVENT DATE: 20220323
